FAERS Safety Report 12988429 (Version 2)
Quarter: 2017Q2

REPORT INFORMATION
  Report Type: Report from Study
  Country: US (occurrence: US)
  Receive Date: 20161130
  Receipt Date: 20170508
  Transmission Date: 20170830
  Serious: Yes (Other)
  Sender: FDA-Public Use
  Company Number: US-ROCHE-1861946

PATIENT
  Age: 59 Year
  Sex: Female
  Weight: 95.5 kg

DRUGS (12)
  1. BEVACIZUMAB [Suspect]
     Active Substance: BEVACIZUMAB
     Indication: OVARIAN EPITHELIAL CANCER
     Dosage: LAST TREATMENT DATE WAS ON 14/JUN/2016
     Route: 042
     Dates: start: 20151217
  2. BEVACIZUMAB [Suspect]
     Active Substance: BEVACIZUMAB
     Route: 042
     Dates: start: 20160317
  3. ABT-888 [Suspect]
     Active Substance: VELIPARIB
     Route: 048
     Dates: start: 20151217
  4. BEVACIZUMAB [Suspect]
     Active Substance: BEVACIZUMAB
     Route: 042
     Dates: start: 20160524
  5. ABT-888 [Suspect]
     Active Substance: VELIPARIB
     Indication: OVARIAN EPITHELIAL CANCER
     Dosage: 17/DEC/2015, 07/JAN/2016, 25/FEB/2016, 17/MAR/2016
     Route: 048
     Dates: start: 20151125
  6. BEVACIZUMAB [Suspect]
     Active Substance: BEVACIZUMAB
     Route: 042
     Dates: start: 20160107
  7. ABT-888 [Suspect]
     Active Substance: VELIPARIB
     Route: 048
     Dates: start: 20160107
  8. BEVACIZUMAB [Suspect]
     Active Substance: BEVACIZUMAB
     Route: 042
     Dates: start: 20160412
  9. BEVACIZUMAB [Suspect]
     Active Substance: BEVACIZUMAB
     Route: 042
     Dates: start: 20160503
  10. ABT-888 [Suspect]
     Active Substance: VELIPARIB
     Route: 048
     Dates: start: 20160317
  11. BEVACIZUMAB [Suspect]
     Active Substance: BEVACIZUMAB
     Route: 042
     Dates: start: 20160225
  12. ABT-888 [Suspect]
     Active Substance: VELIPARIB
     Route: 048
     Dates: start: 20160225

REACTIONS (4)
  - Platelet count decreased [Unknown]
  - Anaemia [Unknown]
  - Neutrophil count decreased [Unknown]
  - White blood cell count decreased [Unknown]
